FAERS Safety Report 23673262 (Version 1)
Quarter: 2024Q1

REPORT INFORMATION
  Report Type: Report from Study
  Country: US (occurrence: US)
  Receive Date: 20240326
  Receipt Date: 20240326
  Transmission Date: 20240410
  Serious: Yes (Other)
  Sender: FDA-Public Use
  Company Number: US-ABBVIE-5691094

PATIENT
  Sex: Female
  Weight: 49 kg

DRUGS (1)
  1. VENCLEXTA [Suspect]
     Active Substance: VENETOCLAX
     Indication: Non-Hodgkin^s lymphoma
     Dosage: 400 MG; TAKE 4 TABLET(S) BY MOUTH DAILY, THE PATIENT STATED SHE WAS ON VENCLEXTA PROBABLY FOR 18 ...
     Route: 048
     Dates: end: 2023

REACTIONS (2)
  - Lymphoma transformation [Not Recovered/Not Resolved]
  - Therapeutic product effect decreased [Not Recovered/Not Resolved]

NARRATIVE: CASE EVENT DATE: 20230101
